FAERS Safety Report 6872503-1 (Version None)
Quarter: 2010Q3

REPORT INFORMATION
  Report Type: 
  Country: None (occurrence: None)
  Receive Date: 20100723
  Receipt Date: 20081025
  Transmission Date: 20110219
  Serious: Yes (Other)
  Sender: FDA-Public Use
  Company Number: US-PFIZER INC-2008081980

PATIENT
  Age: 58 Year
  Sex: Female
  Weight: 71.2 kg

DRUGS (11)
  1. CHANTIX [Suspect]
     Indication: TOBACCO ABUSE
     Dates: start: 20071101
  2. LIBRAX [Concomitant]
  3. ZOLOFT [Concomitant]
  4. TOPROL-XL [Concomitant]
  5. PRAVACHOL [Concomitant]
  6. ASPIRIN [Concomitant]
  7. ALBUTEROL [Concomitant]
  8. IBANDRONATE SODIUM [Concomitant]
  9. CLARITIN [Concomitant]
  10. ADVAIR DISKUS 100/50 [Concomitant]
  11. PRILOSEC [Concomitant]

REACTIONS (1)
  - DIABETES MELLITUS [None]
